FAERS Safety Report 4694457-9 (Version None)
Quarter: 2005Q2

REPORT INFORMATION
  Report Type: 
  Country: None (occurrence: None)
  Receive Date: 20050620
  Receipt Date: 20050608
  Transmission Date: 20051028
  Serious: Yes (Hospitalization, Disabling)
  Sender: FDA-Public Use
  Company Number: US-JNJFOC-20050503564

PATIENT
  Age: 69 Year
  Sex: Female
  Weight: 66.23 kg

DRUGS (15)
  1. IBUPROFEN [Suspect]
     Indication: OSTEOARTHRITIS
  2. ACETAMINOPHEN [Suspect]
     Route: 049
  3. ACETAMINOPHEN [Suspect]
     Route: 049
  4. HYDRODIURIL [Concomitant]
  5. XENADRINE RFA-1 [Concomitant]
  6. XENADRINE RFA-1 [Concomitant]
  7. XENADRINE RFA-1 [Concomitant]
  8. XENADRINE RFA-1 [Concomitant]
  9. XENADRINE RFA-1 [Concomitant]
  10. XENADRINE RFA-1 [Concomitant]
  11. XENADRINE RFA-1 [Concomitant]
  12. XENADRINE RFA-1 [Concomitant]
  13. ZOCOR [Concomitant]
  14. ATENOLOL [Concomitant]
  15. CALCIUM GLUCONATE [Concomitant]

REACTIONS (1)
  - DEEP VEIN THROMBOSIS [None]
